FAERS Safety Report 6647862-5 (Version None)
Quarter: 2010Q1

REPORT INFORMATION
  Report Type: 
  Country: None (occurrence: None)
  Receive Date: 20100324
  Receipt Date: 20100316
  Transmission Date: 20100710
  Serious: Yes (Other)
  Sender: FDA-Public Use
  Company Number: ES-JNJFOC-20091204797

PATIENT
  Age: 41 Year
  Sex: Male

DRUGS (12)
  1. TAVANIC [Suspect]
     Indication: SKIN INFECTION
     Route: 048
     Dates: start: 20091029, end: 20091031
  2. OMEPRAZOLE [Concomitant]
     Route: 065
  3. BACLOFEN [Concomitant]
     Route: 065
  4. PAROXETINE HYDROCHLORIDE [Concomitant]
     Route: 065
  5. MORPHINE SULFATE [Concomitant]
     Route: 065
  6. IBUPROFEN [Concomitant]
     Route: 065
  7. SEVREDOL [Concomitant]
     Route: 065
  8. ALMAX [Concomitant]
     Route: 065
  9. INSULIN DETEMIR [Concomitant]
     Route: 065
  10. ZOLPIDEM [Concomitant]
     Route: 065
  11. GABAPENTIN [Concomitant]
     Route: 065
  12. METFORMIN HCL [Concomitant]
     Route: 065

REACTIONS (5)
  - INSOMNIA [None]
  - LIP OEDEMA [None]
  - NERVOUSNESS [None]
  - SKIN EXFOLIATION [None]
  - SUICIDAL IDEATION [None]
